FAERS Safety Report 23875897 (Version 4)
Quarter: 2024Q4

REPORT INFORMATION
  Report Type: Spontaneous
  Country: US (occurrence: US)
  Receive Date: 20240520
  Receipt Date: 20241003
  Transmission Date: 20250114
  Serious: No
  Sender: SANOFI AVENTIS
  Company Number: US-SA-SAC20240515000087

PATIENT
  Age: 1 Year
  Sex: Female

DRUGS (2)
  1. DUPIXENT [Suspect]
     Active Substance: DUPILUMAB
     Indication: Eczema
     Dosage: 300 MG, Q4W
     Route: 058
     Dates: start: 202404, end: 20240724
  2. DUPIXENT [Suspect]
     Active Substance: DUPILUMAB
     Indication: Dermatitis atopic
     Dosage: 300 MG, Q3W
     Route: 058
     Dates: start: 20240724

REACTIONS (6)
  - Urine odour abnormal [Unknown]
  - Eczema infected [Recovered/Resolved]
  - Eczema [Unknown]
  - Hypersensitivity [Unknown]
  - Off label use [Unknown]
  - Therapeutic response shortened [Unknown]

NARRATIVE: CASE EVENT DATE: 20240101
